FAERS Safety Report 10235373 (Version 1)
Quarter: 2014Q1

REPORT INFORMATION
  Report Type: Spontaneous
  Country: US (occurrence: None)
  Receive Date: 20140306
  Receipt Date: 20140306
  Transmission Date: 20141002
  Serious: Yes (Hospitalization)
  Sender: FDA-Public Use
  Company Number: 163-21880-13092164

PATIENT
  Age: 49 Year
  Sex: Male

DRUGS (8)
  1. REVLIMID (LENALIDOMIDE) (25 MILLIGRAM, CAPSULES) [Suspect]
     Indication: PLASMA CELL MYELOMA
     Route: 048
     Dates: start: 201108
  2. AREDIA (PAMIDRONATE DISODIUM) [Concomitant]
  3. CARISOPRODOL (CARISOPRODOL) [Concomitant]
  4. COMBIVENT (COMBIVENT) [Concomitant]
  5. DEXAMETHASONE (DEXAMETHASONE) [Concomitant]
  6. HYDROCODNE/ACETAMINOPHEN (REMEDEINE) [Concomitant]
  7. METOPROLOL TARTRATE (METOPROLOL TARTRATE) [Concomitant]
  8. OMPRAZOLE (OMEPRAZOLE) [Concomitant]

REACTIONS (1)
  - Dyspnoea [None]
